FAERS Safety Report 10536040 (Version 1)
Quarter: 2014Q4

REPORT INFORMATION
  Report Type: Spontaneous
  Country: US (occurrence: US)
  Receive Date: 20141022
  Receipt Date: 20141022
  Transmission Date: 20150529
  Serious: No
  Sender: FDA-Public Use
  Company Number: US-RECKITT BENCKISER PHARMACEUTICAL, INC-RB-62553-2014

PATIENT

DRUGS (1)
  1. SUBOXONE [Suspect]
     Active Substance: BUPRENORPHINE HYDROCHLORIDE\NALOXONE HYDROCHLORIDE
     Indication: DRUG DEPENDENCE
     Dosage: SUBOXONE FILM; THE PATIENT ESTIMATED THAT HE TAKES 8 MG FILM EVERY TWO WEEKS
     Route: 060

REACTIONS (3)
  - Toothache [Not Recovered/Not Resolved]
  - Substance abuse [Not Recovered/Not Resolved]
  - Tooth impacted [Not Recovered/Not Resolved]
